FAERS Safety Report 6256310-9 (Version None)
Quarter: 2009Q3

REPORT INFORMATION
  Report Type: 
  Country: None (occurrence: None)
  Receive Date: 20090706
  Receipt Date: 20090624
  Transmission Date: 20100115
  Serious: Yes (Hospitalization)
  Sender: FDA-Public Use
  Company Number: US-BAYER-200825249GPV

PATIENT
  Age: 44 Year
  Sex: Female
  Weight: 45 kg

DRUGS (24)
  1. CAMPATH [Suspect]
     Indication: CHRONIC LYMPHOCYTIC LEUKAEMIA
     Route: 042
     Dates: start: 20080507, end: 20080507
  2. CAMPATH [Suspect]
     Route: 042
     Dates: start: 20080508, end: 20080508
  3. CAMPATH [Suspect]
     Route: 042
     Dates: start: 20080509, end: 20080509
  4. CAMPATH [Suspect]
     Route: 042
     Dates: start: 20080918, end: 20080920
  5. CAMPATH [Suspect]
     Route: 042
     Dates: start: 20080619, end: 20080621
  6. CAMPATH [Suspect]
     Route: 042
     Dates: start: 20080818, end: 20080820
  7. CAMPATH [Suspect]
     Route: 042
     Dates: start: 20080716, end: 20080718
  8. CAMPATH [Suspect]
     Route: 042
     Dates: start: 20080512, end: 20080514
  9. FLUDARA [Suspect]
     Indication: CHRONIC LYMPHOCYTIC LEUKAEMIA
     Route: 042
     Dates: start: 20080918, end: 20080920
  10. FLUDARA [Suspect]
     Route: 042
     Dates: start: 20080818, end: 20080820
  11. FLUDARA [Suspect]
     Route: 042
     Dates: start: 20080716, end: 20080718
  12. FLUDARA [Suspect]
     Route: 042
     Dates: start: 20080619, end: 20080621
  13. FLUDARA [Suspect]
     Route: 042
     Dates: start: 20080512, end: 20080514
  14. ACYCLOVIR [Concomitant]
     Indication: ANTIVIRAL PROPHYLAXIS
     Route: 048
     Dates: start: 20070507
  15. CO-TRIMOXAZOLE [Concomitant]
     Route: 048
     Dates: start: 20080507
  16. METHYLPREDNISOLONE [Concomitant]
     Indication: RHEUMATOID ARTHRITIS
     Route: 048
     Dates: start: 20080621, end: 20080808
  17. MOTILIUM [Concomitant]
     Indication: COLITIS
  18. ENTEROL [Concomitant]
     Indication: COLITIS
  19. VANCOMYCIN [Concomitant]
     Indication: COLITIS
     Route: 048
  20. METRONIDAZOLE [Concomitant]
     Indication: ENTEROCOLITIS
     Route: 048
     Dates: start: 20080811, end: 20080821
  21. LOPERAMIDE HYDROCHLORIDE [Concomitant]
     Indication: ENTEROCOLITIS
     Route: 048
     Dates: start: 20080819, end: 20080821
  22. HILAK FORTE [Concomitant]
     Indication: ENTEROCOLITIS
     Dosage: 120 DROPS
     Route: 048
     Dates: start: 20080819
  23. PANCREATIN [Concomitant]
     Indication: ENTEROCOLITIS
     Route: 048
     Dates: start: 20080819
  24. INOSINE [Concomitant]
     Indication: ENTEROCOLITIS
     Dates: start: 20080819

REACTIONS (2)
  - COLITIS [None]
  - GASTROINTESTINAL HYPERMOTILITY [None]
